FAERS Safety Report 8612771 (Version 2)
Quarter: 2012Q4

REPORT INFORMATION
  Report Type: 
  Country: DE (occurrence: DE)
  Receive Date: 20120613
  Receipt Date: 20121217
  Transmission Date: 20130627
  Serious: Yes (Hospitalization)
  Sender: FDA-Public Use
  Company Number: DE-NAPPMUNDI-DEU-2012-0009039

PATIENT
  Age: 55 Year
  Sex: Male
  Weight: 67 kg

DRUGS (4)
  1. OXYGESIC [Suspect]
     Indication: PAIN
     Dosage: 10 mg, bid
     Route: 048
     Dates: start: 20111202, end: 20111204
  2. NOVALGIN [Suspect]
     Indication: CERVICOBRACHIAL SYNDROME
     Dosage: 40 Gtt, tid
     Route: 048
     Dates: start: 20111202, end: 20111204
  3. PANTOPRAZOL [Concomitant]
     Indication: ABDOMINAL PAIN UPPER
     Dosage: 40 mg, daily
     Route: 048
     Dates: start: 20111202, end: 20111204
  4. TETRAZEPAM [Concomitant]
     Indication: CERVICOBRACHIAL SYNDROME
     Dosage: 50 mg, daily
     Route: 048
     Dates: start: 20111202, end: 20111204

REACTIONS (1)
  - Rash generalised [Recovering/Resolving]
